FAERS Safety Report 8893992 (Version 1)
Quarter: 2012Q4

REPORT INFORMATION
  Report Type: 
  Country: CA (occurrence: CA)
  Receive Date: 20121107
  Receipt Date: 20121107
  Transmission Date: 20130627
  Serious: Yes (Other)
  Sender: FDA-Public Use
  Company Number: PHHO2005CA03081

PATIENT
  Sex: Male

DRUGS (14)
  1. SANDOSTATIN LAR [Suspect]
     Indication: PANCREATIC NEUROENDOCRINE TUMOUR
     Dosage: 20 mg, QMO
     Route: 030
     Dates: start: 20040806
  2. SANDOSTATIN LAR [Suspect]
     Dosage: 30 mg, QW3
  3. INSULIN [Concomitant]
  4. APO-METOCLOP [Concomitant]
  5. ASAPHEN [Concomitant]
  6. AVANDIA [Concomitant]
  7. COTAZYM [Concomitant]
  8. CRESTOR [Concomitant]
  9. DIAMICRON [Concomitant]
  10. DILAUDID [Concomitant]
  11. DIOVAN ^CIBA-GEIGY^ [Concomitant]
  12. PANTOLOC ^SOLVAY^ [Concomitant]
  13. SUCRALFATE [Concomitant]
  14. MORPHINE [Concomitant]
     Indication: PAIN

REACTIONS (20)
  - Blood pressure decreased [Unknown]
  - Musculoskeletal pain [Unknown]
  - Hyperglycaemia [Unknown]
  - Blood glucose increased [Unknown]
  - Hypoglycaemia [Unknown]
  - Asthenia [Unknown]
  - Injection site reaction [Unknown]
  - Pain [Unknown]
  - Flushing [Unknown]
  - Myalgia [Unknown]
  - Injection site pain [Unknown]
  - Abdominal distension [Unknown]
  - Nausea [Unknown]
  - Flatulence [Unknown]
  - Pruritus [Unknown]
  - Vomiting [Unknown]
  - Dizziness [Unknown]
  - Abdominal pain [Unknown]
  - Abdominal pain upper [Unknown]
  - Jaundice [Recovering/Resolving]
